FAERS Safety Report 17629458 (Version 3)
Quarter: 2020Q3

REPORT INFORMATION
  Report Type: Spontaneous
  Country: GB (occurrence: GB)
  Receive Date: 20200406
  Receipt Date: 20200728
  Transmission Date: 20201102
  Serious: Yes (Other)
  Sender: FDA-Public Use
  Company Number: GB-TORRENT-00023321

PATIENT
  Age: 34 Year
  Sex: Female
  Weight: 86 kg

DRUGS (8)
  1. OXYBUTYNIN HYDROCHLORIDE [Concomitant]
     Active Substance: OXYBUTYNIN CHLORIDE
     Indication: HYPERHIDROSIS
     Dosage: IN THE MORNINGINSTALLMENTS,DISPENSE WEEKLYDOSE DECREASED ONCE SWEATING REDUCED
     Dates: start: 20200108
  2. HUMIRA [Concomitant]
     Active Substance: ADALIMUMAB
     Indication: PRODUCT USED FOR UNKNOWN INDICATION
     Dosage: UNKNOWN
  3. TRAMADOL. [Concomitant]
     Active Substance: TRAMADOL
     Indication: PAIN
     Dosage: 50MG IN THEMORNING100MGATNIGHT FOR 2 WEEKSTHEN50MG IN THE MORNING AND AT NIGHT 2 WEEKS
     Dates: start: 20191211
  4. OMEPRAZOLE. [Concomitant]
     Active Substance: OMEPRAZOLE
     Indication: PRODUCT USED FOR UNKNOWN INDICATION
     Dosage: UNKNOWN
  5. DULOXETINE. [Suspect]
     Active Substance: DULOXETINE
     Indication: FIBROMYALGIA
     Dates: start: 20200108, end: 20200126
  6. NAPROXEN. [Concomitant]
     Active Substance: NAPROXEN
     Indication: PRODUCT USED FOR UNKNOWN INDICATION
     Dosage: UNKNOWN
  7. PARACETAMOL [Concomitant]
     Active Substance: ACETAMINOPHEN
     Indication: PRODUCT USED FOR UNKNOWN INDICATION
     Dosage: UNKNOWN
  8. PROCHLORPERAZINE. [Concomitant]
     Active Substance: PROCHLORPERAZINE
     Indication: NAUSEA
     Dosage: AS NECESSARY, UP TO THREE TIMES A DAY
     Dates: start: 20191218

REACTIONS (6)
  - Drooling [Recovered/Resolved]
  - Aphasia [Recovered/Resolved]
  - Facial paresis [Recovered/Resolved]
  - Speech disorder [Recovering/Resolving]
  - Dysarthria [Recovered/Resolved]
  - Paraesthesia oral [Recovered/Resolved]

NARRATIVE: CASE EVENT DATE: 20200120
